FAERS Safety Report 4738949-2 (Version None)
Quarter: 2005Q3

REPORT INFORMATION
  Report Type: 
  Country: None (occurrence: None)
  Receive Date: 20050801
  Receipt Date: 20040713
  Transmission Date: 20060218
  Serious: Yes (Other)
  Sender: FDA-Public Use
  Company Number: 207816

PATIENT

DRUGS (2)
  1. HERCEPTIN [Suspect]
     Dosage: INTRAVENOUS
     Route: 042
  2. VINORELBINE TARTRATE [Concomitant]

REACTIONS (1)
  - CARDIAC DISORDER [None]
